FAERS Safety Report 24410374 (Version 1)
Quarter: 2024Q4

REPORT INFORMATION
  Report Type: Spontaneous
  Country: FR (occurrence: FR)
  Receive Date: 20241008
  Receipt Date: 20241008
  Transmission Date: 20250115
  Serious: Yes (Hospitalization, Other)
  Sender: RANBAXY
  Company Number: FR-SUN PHARMACEUTICAL INDUSTRIES LTD-2024R1-471911

PATIENT
  Age: 31 Year
  Sex: Female
  Weight: 64 kg

DRUGS (13)
  1. ASPIRIN [Suspect]
     Active Substance: ASPIRIN
     Indication: Product used for unknown indication
     Dosage: 160 MILLIGRAM, DAILY
     Route: 065
  2. FOLIC ACID [Suspect]
     Active Substance: FOLIC ACID
     Indication: Product used for unknown indication
     Dosage: 5 MILLIGRAM, DAILY
     Route: 065
  3. LABETALOL [Suspect]
     Active Substance: LABETALOL
     Indication: Hypertension
     Dosage: 100 MILLIGRAM, BID
     Route: 065
  4. LEVOTHYROXINE [Suspect]
     Active Substance: LEVOTHYROXINE
     Indication: Product used for unknown indication
     Dosage: 75 MICROGRAM
     Route: 065
  5. METHYLDOPA [Suspect]
     Active Substance: METHYLDOPA
     Indication: Hypertension
     Dosage: UNK
     Route: 065
  6. NICARDIPINE [Suspect]
     Active Substance: NICARDIPINE
     Indication: Hypertension
     Dosage: 50 MILLIGRAM (MORNING, MIDDAY AND EVENING)
     Route: 065
  7. PREDNISONE [Suspect]
     Active Substance: PREDNISONE
     Indication: Product used for unknown indication
     Dosage: 5 MILLIGRAM
     Route: 065
  8. PYRIDOXINE [Suspect]
     Active Substance: PYRIDOXINE
     Indication: Product used for unknown indication
     Dosage: UNK
     Route: 065
  9. ARANESP [Suspect]
     Active Substance: DARBEPOETIN ALFA
     Indication: Product used for unknown indication
     Dosage: 100 MICROGRAM, WEEKLY
     Route: 065
  10. CHOLECALCIFEROL [Suspect]
     Active Substance: CHOLECALCIFEROL
     Indication: Product used for unknown indication
     Dosage: UNK
     Route: 065
  11. LEUCOVORIN [Suspect]
     Active Substance: LEUCOVORIN\LEUCOVORIN CALCIUM
     Indication: Anaemia
     Dosage: UNK
     Route: 065
  12. THIAMINE [Suspect]
     Active Substance: THIAMINE
     Indication: Product used for unknown indication
     Dosage: UNK
     Route: 065
  13. ZINC [Suspect]
     Active Substance: ZINC
     Indication: Product used for unknown indication
     Dosage: UNK
     Route: 065

REACTIONS (11)
  - Premature delivery [Unknown]
  - Hypertension [Unknown]
  - Disease progression [Unknown]
  - Hypophosphataemia [Unknown]
  - Premature rupture of membranes [Unknown]
  - Premature labour [Unknown]
  - Uterine hypotonus [Unknown]
  - Foetal growth restriction [Unknown]
  - Foetal distress syndrome [Unknown]
  - Haemolysis [Unknown]
  - Exposure during pregnancy [Unknown]
